FAERS Safety Report 23433193 (Version 2)
Quarter: 2024Q1

REPORT INFORMATION
  Report Type: Report from Study
  Country: US (occurrence: US)
  Receive Date: 20240123
  Receipt Date: 20240226
  Transmission Date: 20240409
  Serious: Yes (Hospitalization, Other)
  Sender: FDA-Public Use
  Company Number: US-OTSUKA-2024_001389

PATIENT
  Age: 60 Year
  Sex: Male

DRUGS (2)
  1. TOLVAPTAN [Suspect]
     Active Substance: TOLVAPTAN
     Indication: Congenital cystic kidney disease
     Dosage: 30 MG, QD (EVERY MORNING)
     Route: 048
     Dates: start: 20210402, end: 20240115
  2. TOLVAPTAN [Suspect]
     Active Substance: TOLVAPTAN
     Dosage: 15 MG, QD (8 HOURS LATER)
     Route: 048
     Dates: start: 20210402, end: 20240115

REACTIONS (3)
  - Renal transplant [Unknown]
  - End stage renal disease [Unknown]
  - Underdose [Unknown]

NARRATIVE: CASE EVENT DATE: 20240116
